FAERS Safety Report 4694001-6 (Version None)
Quarter: 2005Q2

REPORT INFORMATION
  Report Type: 
  Country: None (occurrence: None)
  Receive Date: 20050616
  Receipt Date: 20050610
  Transmission Date: 20051028
  Serious: Yes (Other)
  Sender: FDA-Public Use
  Company Number: 2005-05-0529

PATIENT
  Age: 13 Year
  Sex: Female
  Weight: 43.0917 kg

DRUGS (2)
  1. CLARITIN [Suspect]
     Indication: SEASONAL ALLERGY
     Dosage: ONE TAB ORAL
     Route: 048
     Dates: start: 20050508, end: 20050508
  2. BENADRYL [Concomitant]

REACTIONS (2)
  - DYSTONIA [None]
  - MYOCLONUS [None]
